FAERS Safety Report 5706108-2 (Version None)
Quarter: 2008Q2

REPORT INFORMATION
  Report Type: 
  Country: None (occurrence: None)
  Receive Date: 20080411
  Receipt Date: 20071129
  Transmission Date: 20081010
  Serious: Yes (Other)
  Sender: FDA-Public Use
  Company Number: 2007RR-13249

PATIENT
  Sex: Male
  Weight: 86 kg

DRUGS (2)
  1. SIMVASTATIN [Suspect]
     Dosage: 40 MG, ORAL
     Route: 048
  2. ATORVASTATIN CALCIUM [Concomitant]

REACTIONS (2)
  - ORAL DISORDER [None]
  - SKIN LESION [None]
